FAERS Safety Report 12412663 (Version 2)
Quarter: 2016Q2

REPORT INFORMATION
  Report Type: Spontaneous
  Country: SI (occurrence: SI)
  Receive Date: 20160527
  Receipt Date: 20160607
  Transmission Date: 20160815
  Serious: No
  Sender: FDA-Public Use
  Company Number: SI-NOVOPROD-492926

PATIENT
  Age: 52 Year
  Sex: Female

DRUGS (7)
  1. DEXAMETHAZONE [Suspect]
     Active Substance: DEXAMETHASONE
     Indication: HERNIA
     Dosage: 1 INJECTION EVERY 2 DAYS
     Route: 058
     Dates: start: 201602, end: 201603
  2. NOLPAZA [Concomitant]
     Active Substance: PANTOPRAZOLE SODIUM
     Dosage: 1 TAB, QD
     Route: 048
     Dates: start: 201602, end: 201603
  3. ESTROFEM [Suspect]
     Active Substance: ESTRADIOL CYPIONATE
     Indication: MENOPAUSAL SYMPTOMS
     Dosage: 2 MG, QD
     Route: 048
     Dates: start: 20160215
  4. COENZYME Q10 + CARNITIN [Concomitant]
  5. OMEGA-3 FATTY ACIDS [Concomitant]
     Active Substance: OMEGA-3 FATTY ACIDS
  6. NAKLOFEN [Suspect]
     Active Substance: DICLOFENAC SODIUM
     Indication: HERNIA
     Dosage: 1 TAB, QD
     Route: 048
     Dates: start: 201602, end: 201603
  7. ESTROFEM [Suspect]
     Active Substance: ESTRADIOL CYPIONATE
     Dosage: UNK
     Route: 048

REACTIONS (1)
  - Dysgeusia [Not Recovered/Not Resolved]

NARRATIVE: CASE EVENT DATE: 20160222
